FAERS Safety Report 12835738 (Version 2)
Quarter: 2016Q4

REPORT INFORMATION
  Report Type: Spontaneous
  Country: US (occurrence: US)
  Receive Date: 20161011
  Receipt Date: 20161207
  Transmission Date: 20170207
  Serious: No
  Sender: FDA-Public Use
  Company Number: US-TEVA-700870USA

PATIENT
  Sex: Female

DRUGS (10)
  1. COPAXONE [Suspect]
     Active Substance: GLATIRAMER ACETATE
     Indication: MULTIPLE SCLEROSIS
     Route: 058
     Dates: start: 201409
  2. ENALAPRIL [Concomitant]
     Active Substance: ENALAPRIL
  3. OXYBUTYNIN [Concomitant]
     Active Substance: OXYBUTYNIN
  4. BACLOFEN. [Concomitant]
     Active Substance: BACLOFEN
  5. LISINOPRIL. [Concomitant]
     Active Substance: LISINOPRIL
  6. GLIPIZIDE. [Concomitant]
     Active Substance: GLIPIZIDE
  7. GABAPENTIN. [Concomitant]
     Active Substance: GABAPENTIN
  8. ALPRAZOLAM. [Concomitant]
     Active Substance: ALPRAZOLAM
  9. MELOXICAM. [Concomitant]
     Active Substance: MELOXICAM
  10. METFORMIN [Concomitant]
     Active Substance: METFORMIN HYDROCHLORIDE

REACTIONS (1)
  - Injection site mass [Not Recovered/Not Resolved]

NARRATIVE: CASE EVENT DATE: 2016
